FAERS Safety Report 5380870-3 (Version None)
Quarter: 2007Q3

REPORT INFORMATION
  Report Type: 
  Country: None (occurrence: None)
  Receive Date: 20070706
  Receipt Date: 20070627
  Transmission Date: 20080115
  Serious: Yes (Hospitalization, Other)
  Sender: FDA-Public Use
  Company Number: GB-JNJFOC-20070602698

PATIENT
  Sex: Female

DRUGS (4)
  1. RISPERDAL [Suspect]
     Route: 048
  2. RISPERDAL [Suspect]
     Indication: PSYCHOTIC DISORDER
     Route: 048
  3. ALENDRONATE SODIUM [Concomitant]
     Indication: OSTEOPOROSIS
     Route: 048
  4. CALCICHEW D3 FORTE [Concomitant]
     Indication: OSTEOPOROSIS

REACTIONS (3)
  - CEREBROVASCULAR ACCIDENT [None]
  - FALL [None]
  - SOMNOLENCE [None]
